FAERS Safety Report 7539145-6 (Version None)
Quarter: 2011Q2

REPORT INFORMATION
  Report Type: 
  Country: None (occurrence: None)
  Receive Date: 20110610
  Receipt Date: 20031124
  Transmission Date: 20111010
  Serious: Yes (Death)
  Sender: FDA-Public Use
  Company Number: PHFR2003GB03956

PATIENT
  Sex: Male

DRUGS (1)
  1. CLOZAPINE [Suspect]
     Indication: SCHIZOPHRENIA
     Dosage: 700 MG, QD
     Route: 048
     Dates: start: 19970129

REACTIONS (5)
  - CARDIAC DISORDER [None]
  - EMPHYSEMA [None]
  - LUNG ABSCESS [None]
  - CARDIAC ARREST [None]
  - PNEUMONIA [None]
